FAERS Safety Report 16764321 (Version 1)
Quarter: 2019Q3

REPORT INFORMATION
  Report Type: Spontaneous
  Country: US (occurrence: US)
  Receive Date: 20190902
  Receipt Date: 20190902
  Transmission Date: 20191005
  Serious: No
  Sender: FDA-Public Use
  Company Number: US-ELI_LILLY_AND_COMPANY-US201908012979

PATIENT
  Sex: Female

DRUGS (3)
  1. HUMULIN N [Suspect]
     Active Substance: INSULIN HUMAN
     Indication: DIABETES MELLITUS
     Dosage: 7 U, EACH MORNING
     Route: 065
     Dates: start: 201803
  2. HUMULIN N [Suspect]
     Active Substance: INSULIN HUMAN
     Dosage: 5 U, DAILY (NIGHT)
     Route: 065
     Dates: start: 201803
  3. HUMALOG [Suspect]
     Active Substance: INSULIN LISPRO
     Indication: DIABETES MELLITUS
     Dosage: 20 U, PRN
     Route: 065
     Dates: start: 201803

REACTIONS (1)
  - Blood glucose increased [Unknown]
